FAERS Safety Report 5044785-2 (Version None)
Quarter: 2006Q3

REPORT INFORMATION
  Report Type: 
  Country: None (occurrence: None)
  Receive Date: 20060707
  Receipt Date: 20060626
  Transmission Date: 20061208
  Serious: Yes (Death)
  Sender: FDA-Public Use
  Company Number: US-AMGEN-STX184305

PATIENT
  Sex: Male

DRUGS (1)
  1. ENBREL [Suspect]
     Indication: BRONCHIOLITIS
     Route: 065
     Dates: start: 20060110, end: 20060603

REACTIONS (1)
  - DEATH [None]
